FAERS Safety Report 6068383-7 (Version None)
Quarter: 2009Q1

REPORT INFORMATION
  Report Type: 
  Country: None (occurrence: None)
  Receive Date: 20090206
  Receipt Date: 20090203
  Transmission Date: 20090719
  Serious: Yes (Death, Hospitalization)
  Sender: FDA-Public Use
  Company Number: US-AMGEN-US326845

PATIENT
  Sex: Female
  Weight: 184 kg

DRUGS (11)
  1. NEUPOGEN [Suspect]
     Indication: CHEMOTHERAPY
     Route: 065
     Dates: start: 20080908, end: 20080909
  2. SUNITINIB MALATE [Suspect]
     Indication: BREAST CANCER
     Route: 048
     Dates: start: 20080717, end: 20080911
  3. PACLITAXEL [Suspect]
     Indication: BREAST CANCER
     Route: 042
     Dates: start: 20080717, end: 20080904
  4. GLIMEPIRIDE [Concomitant]
     Route: 065
     Dates: start: 20010101
  5. ZOMETA [Concomitant]
     Route: 065
     Dates: start: 20060524
  6. VITAMIN E [Concomitant]
     Route: 065
  7. VITAMIN B6 [Concomitant]
     Route: 065
  8. FENTANYL-75 [Concomitant]
     Route: 065
  9. LYRICA [Concomitant]
     Route: 065
  10. FEMARA [Concomitant]
     Route: 065
  11. MULTI-VITAMINS [Concomitant]
     Route: 065

REACTIONS (3)
  - MYOCARDIAL INFARCTION [None]
  - NEUTROPENIC SEPSIS [None]
  - PAIN [None]
